FAERS Safety Report 20251045 (Version 1)
Quarter: 2021Q4

REPORT INFORMATION
  Report Type: Spontaneous
  Country: US (occurrence: US)
  Receive Date: 20211229
  Receipt Date: 20211229
  Transmission Date: 20220303
  Serious: Yes (Other)
  Sender: FDA-Public Use
  Company Number: US-CLOVIS ONCOLOGY-CLO-2021-000832

PATIENT
  Age: 63 Year
  Sex: Female

DRUGS (2)
  1. RUBRACA [Suspect]
     Active Substance: RUCAPARIB CAMSYLATE
     Indication: Ovarian cancer
     Dosage: UNK
  2. CARBOPLATIN\PACLITAXEL [Suspect]
     Active Substance: CARBOPLATIN\PACLITAXEL
     Indication: Ovarian cancer
     Dosage: 3 CYCLES

REACTIONS (1)
  - Ovarian cancer recurrent [Unknown]
